FAERS Safety Report 6684197-9 (Version None)
Quarter: 2010Q2

REPORT INFORMATION
  Report Type: 
  Country: None (occurrence: None)
  Receive Date: 20100416
  Receipt Date: 20100412
  Transmission Date: 20101027
  Serious: Yes (Other)
  Sender: FDA-Public Use
  Company Number: BR-ASTRAZENECA-2010SE16333

PATIENT
  Age: 80 Year
  Sex: Male

DRUGS (9)
  1. ATENOLOL [Suspect]
     Indication: CARDIAC DISORDER
     Route: 048
     Dates: start: 20040101
  2. SELOZOK [Suspect]
     Indication: CARDIAC DISORDER
     Route: 048
     Dates: end: 20090901
  3. SELOZOK [Suspect]
     Route: 048
     Dates: start: 20090901
  4. MONOCORDIL [Concomitant]
     Indication: CARDIAC DISORDER
     Route: 048
  5. PRESSAT [Concomitant]
     Indication: CARDIAC DISORDER
     Route: 048
  6. VASTAREL NR [Concomitant]
     Indication: CARDIAC DISORDER
     Route: 048
     Dates: start: 20040101
  7. FUROSEMIDE [Concomitant]
     Indication: CARDIAC DISORDER
     Route: 048
     Dates: start: 20040101
  8. SINVASTACOR [Concomitant]
     Indication: BLOOD CHOLESTEROL INCREASED
     Route: 048
     Dates: start: 20090101
  9. SINVASTACOR [Concomitant]
     Route: 048
     Dates: start: 20090101

REACTIONS (3)
  - FATIGUE [None]
  - INFARCTION [None]
  - PAIN IN EXTREMITY [None]
